FAERS Safety Report 6112942-X (Version None)
Quarter: 2009Q1

REPORT INFORMATION
  Report Type: 
  Country: None (occurrence: None)
  Receive Date: 20090312
  Receipt Date: 20090226
  Transmission Date: 20090719
  Serious: Yes (Congenital Anomaly)
  Sender: FDA-Public Use
  Company Number: US-ROCHE-617984

PATIENT

DRUGS (5)
  1. CELLCEPT [Suspect]
     Route: 064
  2. CELLCEPT [Suspect]
     Route: 064
  3. TACROLIMUS [Suspect]
     Route: 064
  4. PREDNISONE [Suspect]
     Route: 064
  5. FOLIC ACID [Concomitant]

REACTIONS (10)
  - CATARACT CONGENITAL [None]
  - CLEFT LIP [None]
  - CONGENITAL ANOMALY [None]
  - CONGENITAL HAND MALFORMATION [None]
  - CONGENITAL MUSCULOSKELETAL ANOMALY [None]
  - HEART DISEASE CONGENITAL [None]
  - INTESTINAL MALROTATION [None]
  - LIVE BIRTH [None]
  - MICROPHTHALMOS [None]
  - MICROTIA [None]
